FAERS Safety Report 23130894 (Version 1)
Quarter: 2023Q4

REPORT INFORMATION
  Report Type: Spontaneous
  Country: US (occurrence: US)
  Receive Date: 20231031
  Receipt Date: 20231031
  Transmission Date: 20240110
  Serious: No
  Sender: FDA-Public Use
  Company Number: US-VERTEX PHARMACEUTICALS-2023-016071

PATIENT

DRUGS (1)
  1. TRIKAFTA [Suspect]
     Active Substance: ELEXACAFTOR\IVACAFTOR\TEZACAFTOR
     Indication: Cystic fibrosis
     Dosage: REDUCED DOSE
     Route: 048

REACTIONS (4)
  - Dyspnoea [Unknown]
  - Productive cough [Unknown]
  - Chest discomfort [Unknown]
  - Wheezing [Unknown]
